FAERS Safety Report 9747482 (Version 2)
Quarter: 2013Q4

REPORT INFORMATION
  Report Type: Spontaneous
  Country: CA (occurrence: CA)
  Receive Date: 20131212
  Receipt Date: 20131212
  Transmission Date: 20140711
  Serious: Yes (Other)
  Sender: FDA-Public Use
  Company Number: CA-GE HEALTHCARE MEDICAL DIAGNOSTICS-VISP-PR-1311S-0896

PATIENT
  Age: 60 Year
  Sex: Female

DRUGS (5)
  1. VISIPAQUE [Suspect]
     Indication: CONGENITAL ANOMALY
     Route: 042
     Dates: start: 20131023, end: 20131023
  2. VISIPAQUE [Suspect]
     Indication: MASS
  3. VISIPAQUE [Suspect]
     Indication: DIAGNOSTIC PROCEDURE
  4. HTC [Concomitant]
     Indication: RENAL APLASIA
     Route: 048
  5. HTC [Concomitant]
     Indication: HYPERTENSION

REACTIONS (6)
  - Swelling face [Recovered/Resolved]
  - Burning sensation [Recovered/Resolved]
  - Skin exfoliation [Recovered/Resolved]
  - Swelling [Recovered/Resolved]
  - Erythema [Recovered/Resolved]
  - Urticaria [Recovered/Resolved]
